FAERS Safety Report 4544471-9 (Version None)
Quarter: 2004Q4

REPORT INFORMATION
  Report Type: 
  Country: None (occurrence: None)
  Receive Date: 20041230
  Receipt Date: 20041220
  Transmission Date: 20050328
  Serious: Yes (Other)
  Sender: FDA-Public Use
  Company Number: DSA_25518_2004

PATIENT
  Age: 62 Year
  Sex: Female
  Weight: 73.0291 kg

DRUGS (10)
  1. CARDIZEM CD [Suspect]
     Indication: HYPERTENSION
     Dosage: 24O MG Q DAY PO
     Route: 048
     Dates: start: 20041218, end: 20041218
  2. CARDIZEM CD [Suspect]
     Indication: HYPERTENSION
     Dosage: 240 MG BID PO
     Route: 048
  3. CARDIZEM CD [Suspect]
     Indication: HYPERTENSION
     Dosage: 240 MG BID PO
     Route: 048
     Dates: start: 20041219
  4. AVAPRO [Concomitant]
  5. AMBIEN [Concomitant]
  6. EVISTA [Concomitant]
  7. PEPCID [Concomitant]
  8. ENTERIC ASPIRIN [Concomitant]
  9. CALCIUM GLUCONATE [Concomitant]
  10. MAGNESIUM [Concomitant]

REACTIONS (4)
  - BLOOD PRESSURE INCREASED [None]
  - MALAISE [None]
  - MIGRAINE WITHOUT AURA [None]
  - WEIGHT INCREASED [None]
